FAERS Safety Report 8926898 (Version 2)
Quarter: 2013Q1

REPORT INFORMATION
  Report Type: Spontaneous
  Country: US (occurrence: US)
  Receive Date: 20121127
  Receipt Date: 20130131
  Transmission Date: 20140127
  Serious: Yes (Other)
  Sender: FDA-Public Use
  Company Number: CHPA2012US005838

PATIENT
  Age: 64 Year
  Sex: Male

DRUGS (1)
  1. PREVACID 24HR 15MG [Suspect]
     Indication: GASTROOESOPHAGEAL REFLUX DISEASE
     Dosage: 15 MG, QD
     Route: 048
     Dates: start: 20120321

REACTIONS (8)
  - Intervertebral disc degeneration [Unknown]
  - Rib fracture [Unknown]
  - Atelectasis [Unknown]
  - Foreign body aspiration [Not Recovered/Not Resolved]
  - Scar [Unknown]
  - Pain [Unknown]
  - Dyspnoea [Not Recovered/Not Resolved]
  - Off label use [Unknown]
